FAERS Safety Report 5874757-7 (Version None)
Quarter: 2008Q3

REPORT INFORMATION
  Report Type: 
  Country: None (occurrence: None)
  Receive Date: 20080908
  Receipt Date: 20080908
  Transmission Date: 20090109
  Serious: Yes (Life-Threatening, Hospitalization)
  Sender: FDA-Public Use
  Company Number: None

PATIENT

DRUGS (3)
  1. FASLODEX [Suspect]
  2. FEMARA [Suspect]
  3. XELODA [Suspect]

REACTIONS (1)
  - HEPATOTOXICITY [None]
